FAERS Safety Report 5810460-7 (Version None)
Quarter: 2008Q3

REPORT INFORMATION
  Report Type: 
  Country: None (occurrence: None)
  Receive Date: 20080715
  Receipt Date: 20080703
  Transmission Date: 20090109
  Serious: Yes (Other)
  Sender: FDA-Public Use
  Company Number: DE-PFIZER INC-2008050186

PATIENT
  Sex: Female
  Weight: 75 kg

DRUGS (2)
  1. DEPO-CLINOVIR [Suspect]
     Indication: CONTRACEPTION
     Dosage: FREQ:FIRST INJECTION
     Route: 030
     Dates: start: 20070101, end: 20070101
  2. DEPO-CLINOVIR [Suspect]
     Indication: MENSTRUATION IRREGULAR
     Dosage: FREQ:LAST INJECTION
     Route: 030
     Dates: start: 20080601, end: 20080601

REACTIONS (3)
  - LYMPHATIC DISORDER [None]
  - OEDEMA PERIPHERAL [None]
  - WEIGHT INCREASED [None]
